FAERS Safety Report 18163040 (Version 3)
Quarter: 2022Q1

REPORT INFORMATION
  Report Type: Report from Study
  Country: US (occurrence: US)
  Receive Date: 20200818
  Receipt Date: 20220311
  Transmission Date: 20220423
  Serious: Yes (Hospitalization)
  Sender: FDA-Public Use
  Company Number: US-ABBVIE-20K-163-3343918-00

PATIENT
  Age: 57 Year
  Sex: Male
  Weight: 59.474 kg

DRUGS (2)
  1. VENCLEXTA [Suspect]
     Active Substance: VENETOCLAX
     Indication: Plasma cell myeloma
     Dosage: TAKE 4 TABLET(S) BY MOUTH ONCE DAILY
     Route: 048
     Dates: start: 2019, end: 20200224
  2. VENCLEXTA [Suspect]
     Active Substance: VENETOCLAX
     Dosage: TAKE 4 TABLET(S) BY MOUTH ONCE DAILY
     Route: 048
     Dates: start: 20200727

REACTIONS (4)
  - Spinal fracture [Unknown]
  - Neoplasm malignant [Unknown]
  - Spinal deformity [Recovering/Resolving]
  - Off label use [Unknown]

NARRATIVE: CASE EVENT DATE: 20200316
